FAERS Safety Report 12587543 (Version 5)
Quarter: 2017Q1

REPORT INFORMATION
  Report Type: Report from Study
  Country: CO (occurrence: CO)
  Receive Date: 20160725
  Receipt Date: 20170307
  Transmission Date: 20170428
  Serious: Yes (Death, Other)
  Sender: FDA-Public Use
  Company Number: CO-ROCHE-1801273

PATIENT
  Sex: Female

DRUGS (2)
  1. AVASTIN [Suspect]
     Active Substance: BEVACIZUMAB
     Route: 042
     Dates: start: 2017
  2. AVASTIN [Suspect]
     Active Substance: BEVACIZUMAB
     Indication: GLIOBLASTOMA MULTIFORME
     Route: 042
     Dates: start: 20160223

REACTIONS (5)
  - Visual acuity reduced [Unknown]
  - Arthralgia [Unknown]
  - Death [Fatal]
  - Gingival bleeding [Unknown]
  - Back pain [Unknown]
